FAERS Safety Report 4451061-5 (Version None)
Quarter: 2004Q3

REPORT INFORMATION
  Report Type: 
  Country: None (occurrence: None)
  Receive Date: 20040916
  Receipt Date: 20040903
  Transmission Date: 20050211
  Serious: Yes (Life-Threatening)
  Sender: FDA-Public Use
  Company Number: CH-ROCHE-379593

PATIENT
  Age: 54 Year
  Sex: Male

DRUGS (2)
  1. ROFERON-A [Suspect]
     Route: 058
     Dates: start: 20030415, end: 20031115
  2. COPEGUS [Suspect]
     Route: 048
     Dates: start: 20030415, end: 20031115

REACTIONS (9)
  - ANGIONEUROTIC OEDEMA [None]
  - ANTI FACTOR VIII ANTIBODY POSITIVE [None]
  - COAGULATION FACTOR DECREASED [None]
  - COAGULATION TIME PROLONGED [None]
  - HERPES SIMPLEX [None]
  - MUSCLE HAEMORRHAGE [None]
  - ORAL CANDIDIASIS [None]
  - PAIN [None]
  - RENAL HAEMATOMA [None]
